FAERS Safety Report 6595715-3 (Version None)
Quarter: 2010Q1

REPORT INFORMATION
  Report Type: 
  Country: None (occurrence: None)
  Receive Date: 20100223
  Receipt Date: 20100215
  Transmission Date: 20100710
  Serious: Yes (Hospitalization)
  Sender: FDA-Public Use
  Company Number: US-JNJFOC-20100205611

PATIENT
  Sex: Female
  Weight: 57.15 kg

DRUGS (12)
  1. INFLIXIMAB [Suspect]
     Indication: INFLAMMATORY BOWEL DISEASE
     Route: 042
  2. 5-ASA [Concomitant]
     Route: 048
  3. ERYTHROMYCIN [Concomitant]
  4. NEURONTIN [Concomitant]
  5. CLONAZEPAM [Concomitant]
  6. CLONAZEPAM [Concomitant]
  7. PREDNISONE [Concomitant]
  8. PREVACID [Concomitant]
  9. SENOKOT [Concomitant]
     Dosage: 2-4 TABS
  10. MIRALAX [Concomitant]
  11. DULCOLAX [Concomitant]
     Dosage: 1-3 SUPPOSITORIES DAILY AS NEEDED
  12. ZOFRAN [Concomitant]

REACTIONS (1)
  - IMPAIRED GASTRIC EMPTYING [None]
